FAERS Safety Report 5406134-7 (Version None)
Quarter: 2007Q3

REPORT INFORMATION
  Report Type: 
  Country: None (occurrence: None)
  Receive Date: 20070802
  Receipt Date: 20070802
  Transmission Date: 20080115
  Serious: Yes (Other)
  Sender: FDA-Public Use
  Company Number: None

PATIENT
  Age: 48 Year
  Sex: Male
  Weight: 68.0396 kg

DRUGS (1)
  1. CYPHER CORONARY STENT CORDIS/JOHNSON+JOHNSON [Suspect]
     Indication: ACUTE MYOCARDIAL INFARCTION
     Dates: start: 20070115, end: 20070801

REACTIONS (2)
  - ANGINA PECTORIS [None]
  - CORONARY ARTERY ANEURYSM [None]
